FAERS Safety Report 25859586 (Version 3)
Quarter: 2025Q4

REPORT INFORMATION
  Report Type: Spontaneous
  Country: RW (occurrence: RW)
  Receive Date: 20250929
  Receipt Date: 20251231
  Transmission Date: 20260117
  Serious: Yes (Death, Hospitalization, Other)
  Sender: SANOFI AVENTIS
  Company Number: RW-SA-2025SA283214

PATIENT
  Age: 2 Year
  Sex: Male
  Weight: 18.7 kg

DRUGS (2)
  1. CEREZYME [Suspect]
     Active Substance: IMIGLUCERASE
     Indication: Gaucher^s disease type III
     Dosage: 60 IU, QOW
     Dates: start: 2021
  2. FLUTICASONE [Concomitant]
     Active Substance: FLUTICASONE

REACTIONS (11)
  - Death [Fatal]
  - Epilepsy [Recovering/Resolving]
  - Generalised tonic-clonic seizure [Recovering/Resolving]
  - Myoclonic epilepsy [Recovering/Resolving]
  - Aspiration [Unknown]
  - Growth failure [Recovering/Resolving]
  - Dysphagia [Recovering/Resolving]
  - Strabismus [Unknown]
  - Bronchospasm [Recovering/Resolving]
  - Abdominal lymphadenopathy [Recovering/Resolving]
  - Eye movement disorder [Recovering/Resolving]

NARRATIVE: CASE EVENT DATE: 20220101
